FAERS Safety Report 7446228-8 (Version None)
Quarter: 2011Q2

REPORT INFORMATION
  Report Type: 
  Country: None (occurrence: None)
  Receive Date: 20110429
  Receipt Date: 20110425
  Transmission Date: 20111010
  Serious: Yes (Death)
  Sender: FDA-Public Use
  Company Number: JP-JNJFOC-20110412140

PATIENT
  Age: 84 Year
  Sex: Male

DRUGS (1)
  1. CRAVIT [Suspect]
     Indication: PNEUMONIA
     Route: 048

REACTIONS (2)
  - LIVER DISORDER [None]
  - INFECTION [None]
